FAERS Safety Report 8244371-7 (Version None)
Quarter: 2012Q1

REPORT INFORMATION
  Report Type: 
  Country: None (occurrence: None)
  Receive Date: 20120329
  Receipt Date: 20120315
  Transmission Date: 20120608
  Serious: No
  Sender: FDA-Public Use
  Company Number: US-ENDO PHARMACEUTICALS INC.-OPER20120392

PATIENT
  Sex: Male

DRUGS (4)
  1. OPANA ER [Suspect]
     Indication: NECK PAIN
  2. OPANA ER [Suspect]
     Indication: NERVE COMPRESSION
  3. OPANA ER [Suspect]
     Indication: BACK PAIN
     Route: 048
     Dates: start: 20100101
  4. OPANA ER [Suspect]
     Indication: SPONDYLITIS

REACTIONS (1)
  - DRUG INEFFECTIVE [None]
